FAERS Safety Report 26111644 (Version 1)
Quarter: 2025Q4

REPORT INFORMATION
  Report Type: Spontaneous
  Country: EU (occurrence: EU)
  Receive Date: 20251202
  Receipt Date: 20251202
  Transmission Date: 20260118
  Serious: Yes (Other)
  Sender: RANBAXY
  Company Number: EU-SUN PHARMACEUTICAL INDUSTRIES INC-2025R1-539215

PATIENT
  Age: 60 Year
  Sex: Male

DRUGS (2)
  1. ALPRAZOLAM [Suspect]
     Active Substance: ALPRAZOLAM
     Indication: Insomnia
     Dosage: 0.125 MILLIGRAM AT BEDTIME
     Route: 065
     Dates: start: 20211114
  2. ALPRAZOLAM [Suspect]
     Active Substance: ALPRAZOLAM
     Dosage: 0.25 MILLIGRAM AT BEDTIME
     Route: 065
     Dates: start: 20211117

REACTIONS (2)
  - Homicide [Unknown]
  - Condition aggravated [Unknown]
